FAERS Safety Report 16775991 (Version 6)
Quarter: 2020Q1

REPORT INFORMATION
  Report Type: Spontaneous
  Country: US (occurrence: US)
  Receive Date: 20190905
  Receipt Date: 20200319
  Transmission Date: 20200409
  Serious: Yes (Other)
  Sender: FDA-Public Use
  Company Number: US-PFIZER INC-2019031225

PATIENT
  Age: 75 Year
  Sex: Female
  Weight: 48 kg

DRUGS (2)
  1. LYRICA [Suspect]
     Active Substance: PREGABALIN
     Indication: FIBROMYALGIA
     Dosage: UNK (TAKING HALF THE AMOUNT OF PREGABALIN)
  2. LYRICA [Suspect]
     Active Substance: PREGABALIN
     Dosage: 100 MG, 4X/DAY [EVERY 6 HRS]
     Route: 048
     Dates: start: 2016

REACTIONS (8)
  - Drug dependence [Unknown]
  - Weight increased [Unknown]
  - Crying [Unknown]
  - Emotional disorder [Unknown]
  - Fall [Unknown]
  - Intentional product misuse [Unknown]
  - Malaise [Unknown]
  - Wrist fracture [Unknown]
